FAERS Safety Report 8874536 (Version 1)
Quarter: 2012Q4

REPORT INFORMATION
  Report Type: 
  Country: NL (occurrence: NL)
  Receive Date: 20121023
  Receipt Date: 20121023
  Transmission Date: 20130627
  Serious: Yes (Other)
  Sender: FDA-Public Use
  Company Number: PHHY2012NL094213

PATIENT
  Age: 31 Year
  Sex: Female
  Weight: 45 kg

DRUGS (1)
  1. MINOCYCLINE [Suspect]
     Indication: ACNE
     Dosage: 100 mg, QD
     Route: 048
     Dates: start: 20120612, end: 20120705

REACTIONS (8)
  - Cyanosis [Recovered/Resolved]
  - Weight decreased [Unknown]
  - Lupus-like syndrome [Recovered/Resolved]
  - Myalgia [Recovered/Resolved]
  - Pyrexia [Recovered/Resolved]
  - Fatigue [Unknown]
  - Oedema peripheral [Recovered/Resolved]
  - Pain [Recovered/Resolved]
